FAERS Safety Report 7937666-5 (Version None)
Quarter: 2011Q4

REPORT INFORMATION
  Report Type: 
  Country: None (occurrence: None)
  Receive Date: 20111123
  Receipt Date: 20111114
  Transmission Date: 20120403
  Serious: Yes (Other)
  Sender: FDA-Public Use
  Company Number: PHHY2011MX100895

PATIENT
  Sex: Male

DRUGS (2)
  1. GALVUS MET [Suspect]
     Indication: DIABETES MELLITUS
     Dosage: 1 DF (500 MG METFORMIN AND 50 MG VILDAGLIPTIN), PER DAY
  2. DIOVAN [Suspect]
     Indication: INFARCTION
     Dosage: 1 DF (160 MG VALSARTAN), PER DAY

REACTIONS (4)
  - OROPHARYNGEAL PAIN [None]
  - THYROID NEOPLASM [None]
  - SPEECH DISORDER [None]
  - APHONIA [None]
